FAERS Safety Report 6244037-9 (Version None)
Quarter: 2009Q2

REPORT INFORMATION
  Report Type: 
  Country: None (occurrence: None)
  Receive Date: 20090625
  Receipt Date: 20070703
  Transmission Date: 20091009
  Serious: Yes (Hospitalization)
  Sender: FDA-Public Use
  Company Number: US-ASTRAZENECA-2006UW27664

PATIENT
  Sex: Male
  Weight: 136.1 kg

DRUGS (15)
  1. SEROQUEL [Suspect]
     Indication: BIPOLAR DISORDER
     Route: 048
     Dates: start: 20021101
  2. SEROQUEL [Suspect]
     Indication: SCHIZOPHRENIA
     Route: 048
     Dates: start: 20021101
  3. SEROQUEL [Suspect]
     Indication: DEPRESSION
     Route: 048
     Dates: start: 20021101
  4. SEROQUEL [Suspect]
     Indication: SLEEP DISORDER
     Route: 048
     Dates: start: 20021101
  5. SEROQUEL [Suspect]
     Dosage: 100-200 MG
     Route: 048
     Dates: start: 20040330
  6. SEROQUEL [Suspect]
     Dosage: 100-200 MG
     Route: 048
     Dates: start: 20040330
  7. SEROQUEL [Suspect]
     Dosage: 100-200 MG
     Route: 048
     Dates: start: 20040330
  8. SEROQUEL [Suspect]
     Dosage: 100-200 MG
     Route: 048
     Dates: start: 20040330
  9. RISPERDAL [Suspect]
     Dates: start: 20040101, end: 20040330
  10. RISPERDAL [Suspect]
     Dates: start: 20040422
  11. CLOZARIL [Concomitant]
     Dates: start: 20040101
  12. GEODON [Concomitant]
     Dates: start: 20040101
  13. CELEXA [Concomitant]
     Dates: start: 20040330
  14. CITAPRIL [Concomitant]
  15. LISINOPRIL [Concomitant]
     Indication: BLOOD PRESSURE
     Dosage: HALF TABLET
     Route: 048
     Dates: start: 20040330

REACTIONS (4)
  - DIABETES MELLITUS [None]
  - INJURY [None]
  - MENTAL DISORDER [None]
  - SCHIZOPHRENIA [None]
